FAERS Safety Report 5827255-0 (Version None)
Quarter: 2008Q3

REPORT INFORMATION
  Report Type: 
  Country: None (occurrence: None)
  Receive Date: 20080725
  Receipt Date: 20080711
  Transmission Date: 20090109
  Serious: Yes (Hospitalization)
  Sender: FDA-Public Use
  Company Number: JP-1166498

PATIENT
  Age: 28 Year
  Sex: Female

DRUGS (3)
  1. PATANOL [Suspect]
     Indication: BLEPHARITIS
     Dosage: 1 GTT OU QID; OPTHALMIC
     Route: 047
     Dates: start: 20080619
  2. PATANOL [Suspect]
     Indication: CONJUNCTIVITIS ALLERGIC
     Dosage: 1 GTT OU QID; OPTHALMIC
     Route: 047
     Dates: start: 20080619
  3. PITOS (FLUOROMETHOLONE) [Concomitant]

REACTIONS (3)
  - ANAPHYLACTOID REACTION [None]
  - PYREXIA [None]
  - SHOCK [None]
